FAERS Safety Report 12179174 (Version 2)
Quarter: 2016Q1

REPORT INFORMATION
  Report Type: Report from Study
  Country: JP (occurrence: JP)
  Receive Date: 20160315
  Receipt Date: 20160325
  Transmission Date: 20160526
  Serious: Yes (Hospitalization)
  Sender: FDA-Public Use
  Company Number: JP-ROCHE-1720859

PATIENT
  Age: 75 Year
  Sex: Female
  Weight: 55 kg

DRUGS (10)
  1. CRESTOR [Concomitant]
     Active Substance: ROSUVASTATIN CALCIUM
     Route: 048
  2. VEMURAFENIB [Suspect]
     Active Substance: VEMURAFENIB
     Indication: MALIGNANT MELANOMA
     Route: 048
     Dates: start: 20160127, end: 20160202
  3. EPADEL-S [Concomitant]
     Active Substance: ICOSAPENT ETHYL
     Route: 048
  4. BLOPRESS [Concomitant]
     Active Substance: CANDESARTAN CILEXETIL
     Route: 048
  5. JANUVIA [Concomitant]
     Active Substance: SITAGLIPTIN PHOSPHATE
     Route: 048
  6. ALOSENN [Concomitant]
     Active Substance: SENNA LEAF
     Route: 048
  7. URSO [Concomitant]
     Active Substance: URSODIOL
     Route: 048
  8. LAC-B [Concomitant]
     Active Substance: BIFIDOBACTERIUM SPP.
     Route: 048
  9. VEMURAFENIB [Suspect]
     Active Substance: VEMURAFENIB
     Indication: MALIGNANT MELANOMA
     Route: 048
     Dates: start: 20160208
  10. JUVELA N [Concomitant]
     Active Substance: TOCOPHERYL NICOTINATE, D-.ALPHA.
     Route: 048

REACTIONS (3)
  - Acute hepatic failure [Recovering/Resolving]
  - Decreased appetite [Unknown]
  - Pancreatitis [Recovered/Resolved]

NARRATIVE: CASE EVENT DATE: 20160212
